FAERS Safety Report 5314585-4 (Version None)
Quarter: 2007Q2

REPORT INFORMATION
  Report Type: 
  Country: None (occurrence: None)
  Receive Date: 20070427
  Receipt Date: 20070412
  Transmission Date: 20071010
  Serious: No
  Sender: FDA-Public Use
  Company Number: 13746060

PATIENT
  Age: 41 Year
  Sex: Male

DRUGS (4)
  1. NALTREXONE HYDROCHLORIDE [Suspect]
     Indication: ALCOHOLISM
     Dosage: 50 MILLIGRAM ORAL
     Route: 048
     Dates: start: 20041101, end: 20070111
  2. HALOPERIDOL [Concomitant]
  3. LITHIUM CARBONATE [Concomitant]
  4. PAROXETINE (PAROXETINE HCL) [Concomitant]

REACTIONS (3)
  - GAMMA-GLUTAMYLTRANSFERASE INCREASED [None]
  - HYPERCHOLESTEROLAEMIA [None]
  - HYPERTRIGLYCERIDAEMIA [None]
